FAERS Safety Report 6099962-9 (Version None)
Quarter: 2009Q1

REPORT INFORMATION
  Report Type: 
  Country: None (occurrence: None)
  Receive Date: 20090303
  Receipt Date: 20090220
  Transmission Date: 20090719
  Serious: Yes (Hospitalization)
  Sender: FDA-Public Use
  Company Number: PHHY2008DE27475

PATIENT
  Sex: Male
  Weight: 108 kg

DRUGS (2)
  1. DIOVAN [Suspect]
     Indication: CONGESTIVE CARDIOMYOPATHY
     Dosage: 320 MG/DAY
     Route: 048
     Dates: start: 20070514
  2. CONCOR [Concomitant]
     Dosage: 2.5 MG, UNK

REACTIONS (4)
  - BLOOD CREATINE PHOSPHOKINASE INCREASED [None]
  - MUSCULAR WEAKNESS [None]
  - MYALGIA [None]
  - NEUROMYOPATHY [None]
